FAERS Safety Report 6996946-0 (Version None)
Quarter: 2010Q3

REPORT INFORMATION
  Report Type: 
  Country: None (occurrence: None)
  Receive Date: 20100918
  Receipt Date: 20090826
  Transmission Date: 20110219
  Serious: Yes (Hospitalization)
  Sender: FDA-Public Use
  Company Number: US-WYE-H10734809

PATIENT
  Sex: Female

DRUGS (4)
  1. EFFEXOR XR [Suspect]
     Indication: DEPRESSION
     Route: 048
     Dates: start: 20060101, end: 20090801
  2. EFFEXOR XR [Suspect]
     Indication: ANXIETY
     Dosage: ^CURRENTLY TAPERING OFF EFFEXOR XR^
     Route: 048
     Dates: start: 20090801
  3. METOPROLOL [Concomitant]
     Dosage: UNKNOWN
  4. ATIVAN [Concomitant]
     Dosage: UNKNOWN

REACTIONS (2)
  - LICHENOID KERATOSIS [None]
  - URTICARIA [None]
